FAERS Safety Report 5016958-6 (Version None)
Quarter: 2006Q2

REPORT INFORMATION
  Report Type: 
  Country: None (occurrence: None)
  Receive Date: 20060526
  Receipt Date: 20060511
  Transmission Date: 20061013
  Serious: Yes (Other)
  Sender: FDA-Public Use
  Company Number: US200605002862

PATIENT
  Age: 15 Year
  Sex: Female

DRUGS (2)
  1. HUMATROPE [Suspect]
     Dosage: SUBCUTANEOUS
     Route: 058
     Dates: start: 20060511
  2. HUMATROPEN (HUMATROPEN) [Concomitant]

REACTIONS (1)
  - GRAND MAL CONVULSION [None]
